FAERS Safety Report 19793282 (Version 1)
Quarter: 2021Q3

REPORT INFORMATION
  Report Type: Spontaneous
  Country: FR (occurrence: FR)
  Receive Date: 20210906
  Receipt Date: 20210906
  Transmission Date: 20211014
  Serious: Yes (Other)
  Sender: FDA-Public Use
  Company Number: FR-ACCORD-237537

PATIENT
  Age: 49 Year
  Sex: Female

DRUGS (4)
  1. PACLITAXEL/PACLITAXEL LIPOSOME [Suspect]
     Active Substance: PACLITAXEL
     Indication: BREAST CANCER
  2. CYCLOPHOSPHAMIDE/CYCLOPHOSPHAMIDE MONOHYDRATE [Suspect]
     Active Substance: CYCLOPHOSPHAMIDE
     Indication: BREAST CANCER
  3. EPIRUBICIN [Suspect]
     Active Substance: EPIRUBICIN
     Indication: BREAST CANCER
  4. TAMOXIFEN [Suspect]
     Active Substance: TAMOXIFEN
     Indication: BREAST CANCER
     Dosage: 20MG DAILY

REACTIONS (1)
  - Uveitis [Recovered/Resolved]
